FAERS Safety Report 17230039 (Version 3)
Quarter: 2020Q1

REPORT INFORMATION
  Report Type: Spontaneous
  Country: FR (occurrence: FR)
  Receive Date: 20200103
  Receipt Date: 20200211
  Transmission Date: 20200409
  Serious: Yes (Other)
  Sender: FDA-Public Use
  Company Number: FR-MYLANLABS-2020M1000155

PATIENT
  Age: 25 Year
  Sex: Female
  Weight: 52 kg

DRUGS (2)
  1. FLUCONAZOLE. [Suspect]
     Active Substance: FLUCONAZOLE
     Dosage: 200 MILLIGRAM, QD (100 MG, TWICE DAILY (TOTAL DOSE 2 G WITHIN 15 DAYS))
     Route: 048
     Dates: start: 20190829, end: 20190914
  2. FLUCONAZOLE. [Suspect]
     Active Substance: FLUCONAZOLE
     Indication: ORAL FUNGAL INFECTION
     Dosage: 4 MG/KG, DAILY, TOTAL DOSE 2 G WITHIN 15 DAYS

REACTIONS (3)
  - Abortion spontaneous [Recovered/Resolved]
  - Metrorrhagia [Unknown]
  - Maternal exposure during pregnancy [Recovered/Resolved]

NARRATIVE: CASE EVENT DATE: 20190925
